FAERS Safety Report 7412403-1 (Version None)
Quarter: 2011Q2

REPORT INFORMATION
  Report Type: 
  Country: None (occurrence: None)
  Receive Date: 20110413
  Receipt Date: 20110401
  Transmission Date: 20111010
  Serious: Yes (Other)
  Sender: FDA-Public Use
  Company Number: CA-ELI_LILLY_AND_COMPANY-CA201101004065

PATIENT
  Age: 55 Year
  Sex: Female

DRUGS (13)
  1. FORTEO [Suspect]
     Indication: OSTEOPOROSIS
     Dosage: 20 UG, DAILY (1/D)
     Route: 058
     Dates: start: 20090529
  2. WARFARIN [Concomitant]
  3. ATIVAN [Concomitant]
  4. DIOVAN [Concomitant]
  5. ZANAFLEX [Concomitant]
  6. EFFEXOR XR [Concomitant]
  7. DILAUDID [Concomitant]
     Dosage: 2 MG, EACH MORNING
  8. VITAMIN D [Concomitant]
  9. WOBENZYM [Concomitant]
  10. ENZYMES [Concomitant]
  11. DILAUDID [Concomitant]
     Dosage: 4 MG, EACH EVENING
  12. MULTI-VITAMIN [Concomitant]
  13. BOTOX [Concomitant]
     Dosage: UNK, OTHER

REACTIONS (8)
  - VISION BLURRED [None]
  - URINARY INCONTINENCE [None]
  - PARAESTHESIA [None]
  - FAECAL INCONTINENCE [None]
  - TRANSIENT ISCHAEMIC ATTACK [None]
  - SYSTEMIC LUPUS ERYTHEMATOSUS [None]
  - BONE PAIN [None]
  - ASTHENIA [None]
